FAERS Safety Report 5675771-7 (Version None)
Quarter: 2008Q1

REPORT INFORMATION
  Report Type: 
  Country: None (occurrence: None)
  Receive Date: 20080321
  Receipt Date: 20080314
  Transmission Date: 20080703
  Serious: Yes (Other)
  Sender: FDA-Public Use
  Company Number: US-GENENTECH-257760

PATIENT
  Age: 46 Year
  Sex: Male

DRUGS (17)
  1. XOLAIR [Suspect]
     Indication: ASTHMA
     Dosage: 300 MG, 1/WEEK
     Route: 058
     Dates: start: 20070101
  2. ALLEGRA [Concomitant]
     Indication: DRUG USE FOR UNKNOWN INDICATION
  3. WELLBUTRIN XL [Concomitant]
     Indication: DRUG USE FOR UNKNOWN INDICATION
  4. COGENTIN [Concomitant]
     Indication: DRUG USE FOR UNKNOWN INDICATION
  5. DIOVAN [Concomitant]
     Indication: DRUG USE FOR UNKNOWN INDICATION
  6. LEVOXYL [Concomitant]
     Indication: DRUG USE FOR UNKNOWN INDICATION
  7. TRICOR [Concomitant]
     Indication: DRUG USE FOR UNKNOWN INDICATION
  8. FLOMAX [Concomitant]
     Indication: DRUG USE FOR UNKNOWN INDICATION
  9. NEXIUM [Concomitant]
     Indication: DRUG USE FOR UNKNOWN INDICATION
  10. SINGULAIR [Concomitant]
     Indication: DRUG USE FOR UNKNOWN INDICATION
  11. DEPAKOTE ER [Concomitant]
     Indication: DRUG USE FOR UNKNOWN INDICATION
  12. SEROQUEL [Concomitant]
     Indication: DRUG USE FOR UNKNOWN INDICATION
  13. ZYPREXA [Concomitant]
     Indication: DRUG USE FOR UNKNOWN INDICATION
  14. NYSTATIN [Concomitant]
     Indication: DRUG USE FOR UNKNOWN INDICATION
  15. SYMBICORT [Concomitant]
     Indication: DRUG USE FOR UNKNOWN INDICATION
  16. XOPENEX [Concomitant]
     Indication: DRUG USE FOR UNKNOWN INDICATION
  17. SPIRIVA [Concomitant]
     Indication: DRUG USE FOR UNKNOWN INDICATION

REACTIONS (1)
  - RENAL FAILURE [None]
